FAERS Safety Report 23568499 (Version 1)
Quarter: 2024Q1

REPORT INFORMATION
  Report Type: Spontaneous
  Country: US (occurrence: US)
  Receive Date: 20240227
  Receipt Date: 20240227
  Transmission Date: 20240410
  Serious: No
  Sender: FDA-Public Use
  Company Number: US-PADAGIS-2024PAD00247

PATIENT

DRUGS (4)
  1. BUDESONIDE [Suspect]
     Active Substance: BUDESONIDE
     Indication: Colitis microscopic
     Dosage: 9 MG, QD
     Route: 065
     Dates: start: 202309, end: 20240118
  2. BUDESONIDE [Suspect]
     Active Substance: BUDESONIDE
     Indication: Intestinal barrier dysfunction
  3. ENTOCORT EC [Concomitant]
     Active Substance: BUDESONIDE
     Indication: Intestinal barrier dysfunction
     Dosage: UNK
     Route: 065
  4. ENTOCORT EC [Concomitant]
     Active Substance: BUDESONIDE
     Indication: Colitis microscopic

REACTIONS (8)
  - Cardiac discomfort [Unknown]
  - Adverse event [Unknown]
  - Dyspnoea [Unknown]
  - Tremor [Unknown]
  - Headache [Unknown]
  - Dizziness [Not Recovered/Not Resolved]
  - Somnolence [Not Recovered/Not Resolved]
  - Product use in unapproved indication [Unknown]

NARRATIVE: CASE EVENT DATE: 20240101
